FAERS Safety Report 6410843-0 (Version None)
Quarter: 2009Q4

REPORT INFORMATION
  Report Type: 
  Country: None (occurrence: None)
  Receive Date: 20091022
  Receipt Date: 20091009
  Transmission Date: 20100525
  Serious: Yes (Other)
  Sender: FDA-Public Use
  Company Number: PHHY2009AU29104

PATIENT
  Sex: Female

DRUGS (4)
  1. CLOZARIL [Suspect]
     Indication: SCHIZOAFFECTIVE DISORDER
     Dosage: 12.5 MG DAILY
     Route: 048
     Dates: start: 20090701
  2. CLOZARIL [Suspect]
     Dosage: 100 MG DAILY
     Route: 048
     Dates: start: 20090708
  3. CLOZARIL [Suspect]
     Dosage: 125 MG DAILY
     Route: 048
     Dates: start: 20090715, end: 20090715
  4. LORAZEPAM [Concomitant]
     Dosage: 1 MG, PRN
     Dates: start: 20090706, end: 20090729

REACTIONS (7)
  - BRADYCARDIA [None]
  - HYPOTENSION [None]
  - NEUTROPHIL COUNT INCREASED [None]
  - SINUS ARRHYTHMIA [None]
  - SINUS TACHYCARDIA [None]
  - SYNCOPE [None]
  - WHITE BLOOD CELL COUNT INCREASED [None]
